FAERS Safety Report 25412745 (Version 1)
Quarter: 2025Q2

REPORT INFORMATION
  Report Type: Spontaneous
  Country: ES (occurrence: ES)
  Receive Date: 20250609
  Receipt Date: 20250609
  Transmission Date: 20250717
  Serious: Yes (Death, Hospitalization)
  Sender: FRESENIUS KABI
  Company Number: None

PATIENT
  Age: 66 Year
  Sex: Male

DRUGS (6)
  1. LINEZOLID [Suspect]
     Active Substance: LINEZOLID
     Indication: Pneumonia
     Route: 042
     Dates: start: 20250120, end: 20250124
  2. CIPROFLOXACIN [Suspect]
     Active Substance: CIPROFLOXACIN
     Indication: Pneumonia
     Route: 042
     Dates: start: 20250127, end: 20250131
  3. CEFAZOLIN SODIUM [Suspect]
     Active Substance: CEFAZOLIN SODIUM
     Indication: Pneumonia
     Route: 042
     Dates: start: 20250127, end: 20250131
  4. CEFAZOLIN SODIUM [Concomitant]
     Active Substance: CEFAZOLIN SODIUM
     Indication: Pneumonia
     Route: 042
     Dates: start: 20250116, end: 20250126
  5. ANIDULAFUNGIN (8100A) [Concomitant]
     Indication: Pneumonia
     Route: 042
     Dates: start: 20250122, end: 20250131
  6. ISAVUCONAZOLE SULFATE (8742SU) [Concomitant]
     Indication: Pneumonia
     Route: 042
     Dates: start: 20250121, end: 20250209

REACTIONS (1)
  - Pancytopenia [Fatal]

NARRATIVE: CASE EVENT DATE: 20250128
